FAERS Safety Report 13589867 (Version 1)
Quarter: 2017Q2

REPORT INFORMATION
  Report Type: Spontaneous
  Country: FR (occurrence: FR)
  Receive Date: 20170529
  Receipt Date: 20170529
  Transmission Date: 20170830
  Serious: Yes (Hospitalization)
  Sender: FDA-Public Use
  Company Number: FR-ROCHE-1937166

PATIENT
  Age: 64 Year
  Sex: Female

DRUGS (12)
  1. METHYLPREDNISOLONE. [Concomitant]
     Active Substance: METHYLPREDNISOLONE
     Indication: PREMEDICATION
     Route: 041
     Dates: start: 20160331, end: 20160901
  2. LANTUS [Concomitant]
     Active Substance: INSULIN GLARGINE
     Indication: DIABETES MELLITUS
     Route: 058
  3. POLARAMINE [Concomitant]
     Active Substance: DEXCHLORPHENIRAMINE MALEATE
     Indication: PREMEDICATION
     Dosage: 5 MG/1 ML
     Route: 042
     Dates: start: 20160331, end: 20160901
  4. AROMASINE [Concomitant]
     Active Substance: EXEMESTANE
     Indication: BREAST CANCER
     Route: 048
  5. AVASTIN [Suspect]
     Active Substance: BEVACIZUMAB
     Indication: NEOPLASM MALIGNANT
     Dosage: DAY1?25MG/ML
     Route: 041
     Dates: start: 20160331, end: 20160818
  6. PACLITAXEL ARROW [Suspect]
     Active Substance: PACLITAXEL
     Indication: NEOPLASM MALIGNANT
     Dosage: 6 COURSES OF CHEMOTHERAPY- D1-D8-D15
     Route: 041
     Dates: start: 20160331, end: 20160901
  7. PACLITAXEL ACTAVIS [Suspect]
     Active Substance: PACLITAXEL
     Indication: NEOPLASM MALIGNANT
     Dosage: DAY1-DAY8-DAY-15
     Route: 041
     Dates: start: 20160331, end: 20160901
  8. ONDANSETRON [Concomitant]
     Active Substance: ONDANSETRON
     Indication: PREMEDICATION
     Dosage: 2 MG/ML
     Route: 041
     Dates: start: 20160331, end: 20160901
  9. CARBOPLATIN ACCORD [Suspect]
     Active Substance: CARBOPLATIN
     Indication: NEOPLASM MALIGNANT
     Dosage: DAY1 10MG/ML
     Route: 041
     Dates: start: 20160331, end: 20160818
  10. CARBOPLATIN. [Suspect]
     Active Substance: CARBOPLATIN
     Indication: NEOPLASM MALIGNANT
     Dosage: DAY1?10 MG/ML
     Route: 041
     Dates: start: 20160331, end: 20160818
  11. BROMAZEPAM [Concomitant]
     Active Substance: BROMAZEPAM
     Indication: PREMEDICATION
     Route: 048
     Dates: start: 20160331, end: 20160818
  12. NOVORAPID [Concomitant]
     Active Substance: INSULIN ASPART
     Indication: DIABETES MELLITUS
     Dosage: 27 U EVERY MORNING, 25 U EVERY EVENING
     Route: 058

REACTIONS (2)
  - Condition aggravated [Not Recovered/Not Resolved]
  - Neuropathy peripheral [Not Recovered/Not Resolved]

NARRATIVE: CASE EVENT DATE: 20160414
